FAERS Safety Report 20074238 (Version 1)
Quarter: 2021Q4

REPORT INFORMATION
  Report Type: Report from Study
  Country: US (occurrence: None)
  Receive Date: 20211116
  Receipt Date: 20211116
  Transmission Date: 20220303
  Serious: Yes (Death)
  Sender: FDA-Public Use
  Company Number: US-ROCHE-2956431

PATIENT
  Age: 85 Year
  Sex: Male
  Weight: 103.06 kg

DRUGS (16)
  1. DORNASE ALFA [Suspect]
     Active Substance: DORNASE ALFA
     Indication: COVID-19
     Dates: start: 20211022, end: 20211108
  2. DORNASE ALFA [Suspect]
     Active Substance: DORNASE ALFA
     Indication: Acute respiratory distress syndrome
  3. ACETAZOLAMIDE [Concomitant]
     Active Substance: ACETAZOLAMIDE
     Dates: start: 20211109
  4. CARBOXYMETHYLCELLULOSE [Concomitant]
     Active Substance: CARBOXYMETHYLCELLULOSE
     Route: 047
     Dates: start: 20211024
  5. ENOXAPARIN [Concomitant]
     Active Substance: ENOXAPARIN
     Dates: start: 20211018, end: 20211109
  6. HYDROMORPHONE [Concomitant]
     Active Substance: HYDROMORPHONE
     Dates: start: 20211109
  7. FUROSEMIDE [Concomitant]
     Active Substance: FUROSEMIDE
     Dates: start: 20211108, end: 20211109
  8. GLYCOPYRROLATE [Concomitant]
     Active Substance: GLYCOPYRROLATE
     Dates: start: 20211109
  9. NPH INSULIN [Concomitant]
     Active Substance: INSULIN BEEF
     Dates: start: 20211104, end: 20211109
  10. IPRATROPIUM [Concomitant]
     Active Substance: IPRATROPIUM
     Dates: start: 20211019, end: 20211109
  11. ALBUTEROL [Concomitant]
     Active Substance: ALBUTEROL
     Dates: start: 20211019, end: 20211109
  12. MEROPENEM [Concomitant]
     Active Substance: MEROPENEM
     Dates: start: 20211104, end: 20211109
  13. PANTOPRAZOLE [Concomitant]
     Active Substance: PANTOPRAZOLE
     Dates: start: 20211020, end: 20211109
  14. MOXIFLOXACIN [Concomitant]
     Active Substance: MOXIFLOXACIN
     Dates: start: 20211018, end: 20211109
  15. DEXMEDETOMIDINE [Concomitant]
     Active Substance: DEXMEDETOMIDINE
     Dates: start: 20211027, end: 20211109
  16. LORAZEPAM [Concomitant]
     Active Substance: LORAZEPAM
     Dates: start: 20211109

REACTIONS (1)
  - Acute respiratory failure [Fatal]

NARRATIVE: CASE EVENT DATE: 20211109
